FAERS Safety Report 5515136-1 (Version None)
Quarter: 2007Q4

REPORT INFORMATION
  Report Type: 
  Country: None (occurrence: None)
  Receive Date: 20071113
  Receipt Date: 20070115
  Transmission Date: 20080405
  Serious: No
  Sender: FDA-Public Use
  Company Number: A0635700A

PATIENT
  Age: 79 Year
  Sex: Male

DRUGS (4)
  1. COREG [Suspect]
     Route: 048
     Dates: start: 19960101
  2. ATACAND [Concomitant]
  3. HYDROCHLOROTHIAZIDE [Concomitant]
  4. LASIX [Concomitant]

REACTIONS (3)
  - ASTHENIA [None]
  - DYSPNOEA [None]
  - RASH [None]
